FAERS Safety Report 4678291-1 (Version None)
Quarter: 2005Q2

REPORT INFORMATION
  Report Type: 
  Country: None (occurrence: None)
  Receive Date: 20050527
  Receipt Date: 20050516
  Transmission Date: 20051028
  Serious: Yes (Hospitalization, Other)
  Sender: FDA-Public Use
  Company Number: SGB1-2005-00167

PATIENT
  Age: 70 Year
  Sex: Male

DRUGS (10)
  1. LANTHANUM CARBONATE VS PLACEBO (LANTHANUM CARBONATE VS PLACEBO) TABLET [Suspect]
     Indication: HYPERPHOSPHATAEMIA
     Dosage: ORAL
     Route: 048
     Dates: start: 20050329
  2. FUROSEMIDE [Concomitant]
  3. NORVASC /GRC/ (AMLODIPINE) [Concomitant]
  4. VALSARTAN [Concomitant]
  5. PROCATEROL HCL [Concomitant]
  6. NOVOLIN R [Concomitant]
  7. NOVOLIN N [Concomitant]
  8. EPOGEN [Concomitant]
  9. HEPARIN [Concomitant]
  10. FLUITIDE DISKUS (FLUTICASONE PROPIONATE) [Concomitant]

REACTIONS (4)
  - ASTHMA [None]
  - BLOOD PRESSURE DECREASED [None]
  - CONDITION AGGRAVATED [None]
  - HYPOGLYCAEMIA [None]
